FAERS Safety Report 6830527-4 (Version None)
Quarter: 2010Q3

REPORT INFORMATION
  Report Type: 
  Country: None (occurrence: None)
  Receive Date: 20100712
  Receipt Date: 20100707
  Transmission Date: 20110219
  Serious: Yes (Hospitalization)
  Sender: FDA-Public Use
  Company Number: US-SP-2010-02033

PATIENT
  Sex: Male

DRUGS (5)
  1. THERACYS [Suspect]
     Indication: BLADDER CANCER
     Route: 043
     Dates: start: 20100318, end: 20100318
  2. NEXIUM [Concomitant]
  3. BUSPIRONE HCL [Concomitant]
  4. ENALAPRIL MALEATE [Concomitant]
     Indication: HYPERTENSION
  5. CLARINEX [Concomitant]

REACTIONS (12)
  - ALANINE AMINOTRANSFERASE INCREASED [None]
  - ASPARTATE AMINOTRANSFERASE INCREASED [None]
  - CHILLS [None]
  - COUGH [None]
  - DECREASED APPETITE [None]
  - MUSCLE SPASMS [None]
  - MYALGIA [None]
  - MYCOBACTERIUM TUBERCULOSIS COMPLEX TEST POSITIVE [None]
  - NIGHT SWEATS [None]
  - PYREXIA [None]
  - SEPSIS [None]
  - TINNITUS [None]
